FAERS Safety Report 6220478-0 (Version None)
Quarter: 2009Q2

REPORT INFORMATION
  Report Type: 
  Country: None (occurrence: None)
  Receive Date: 20090610
  Receipt Date: 20090601
  Transmission Date: 20091009
  Serious: Yes (Hospitalization)
  Sender: FDA-Public Use
  Company Number: JP-ASTRAZENECA-2008SE04799

PATIENT
  Age: 26406 Day
  Sex: Male
  Weight: 54 kg

DRUGS (14)
  1. BLOPRESS TABLETS 8 [Suspect]
     Indication: HYPERTENSION
     Route: 048
  2. BLOPRESS TABLETS 8 [Suspect]
     Route: 048
     Dates: end: 20080111
  3. PASIL(PAZUFLOXACIN MESILATE) [Suspect]
     Route: 041
     Dates: start: 20080104, end: 20080107
  4. FIRSTCIN [Concomitant]
     Indication: PNEUMONIA
     Route: 042
     Dates: start: 20071225, end: 20080104
  5. CARDENALIN [Concomitant]
     Indication: HYPERTENSION
     Route: 048
  6. ARTIST [Concomitant]
     Indication: HYPERTENSION
     Route: 048
  7. THYRADIN S [Concomitant]
     Indication: HYPOTHYROIDISM
     Route: 048
  8. CALTAN(PRECIPITATED CALCIUM CARBONATE) [Concomitant]
     Indication: HYPERPHOSPHATAEMIA
     Route: 048
  9. MUCOSTA [Concomitant]
     Indication: GASTRIC ULCER
     Route: 048
  10. LOXONIN [Concomitant]
     Indication: PAIN
     Route: 048
  11. ANPLAG [Concomitant]
     Indication: ARTERIOSCLEROSIS
     Route: 048
  12. PROCYLIN [Concomitant]
     Route: 048
  13. UNASYN [Concomitant]
     Route: 041
  14. DALACIN [Concomitant]
     Route: 065

REACTIONS (1)
  - INTERSTITIAL LUNG DISEASE [None]
